FAERS Safety Report 23584739 (Version 1)
Quarter: 2024Q1

REPORT INFORMATION
  Report Type: Spontaneous
  Country: US (occurrence: US)
  Receive Date: 20240301
  Receipt Date: 20240301
  Transmission Date: 20240409
  Serious: No
  Sender: FDA-Public Use
  Company Number: US-GRAVITIPHARMA-GRA-2303-US-SPO-0009

PATIENT

DRUGS (1)
  1. BUPROPION HYDROCHLORIDE [Suspect]
     Active Substance: BUPROPION HYDROCHLORIDE
     Indication: Product used for unknown indication

REACTIONS (6)
  - Decreased appetite [Unknown]
  - Migraine [Unknown]
  - Mood swings [Unknown]
  - Nausea [Unknown]
  - Product substitution issue [Unknown]
  - Product dose omission issue [Unknown]
